FAERS Safety Report 9826037 (Version 4)
Quarter: 2015Q1

REPORT INFORMATION
  Report Type: Spontaneous
  Country: US (occurrence: US)
  Receive Date: 20140117
  Receipt Date: 20150130
  Transmission Date: 20150721
  Serious: Yes (Other)
  Sender: FDA-Public Use
  Company Number: US-ASTELLAS-2014US000535

PATIENT
  Age: 63 Year
  Sex: Male
  Weight: 156 kg

DRUGS (16)
  1. PRADAXA [Concomitant]
     Active Substance: DABIGATRAN ETEXILATE MESYLATE
     Indication: PRODUCT USED FOR UNKNOWN INDICATION
     Route: 048
  2. JANUVIA [Concomitant]
     Active Substance: SITAGLIPTIN PHOSPHATE
     Indication: PRODUCT USED FOR UNKNOWN INDICATION
     Route: 048
  3. VESICARE [Suspect]
     Active Substance: SOLIFENACIN SUCCINATE
     Indication: POLLAKIURIA
     Route: 048
  4. VESICARE [Suspect]
     Active Substance: SOLIFENACIN SUCCINATE
     Indication: URINARY TRACT DISORDER
  5. TAMSULOSIN [Concomitant]
     Active Substance: TAMSULOSIN
     Indication: PRODUCT USED FOR UNKNOWN INDICATION
     Dosage: 0.4 MG, ONCE DAILY
     Route: 048
  6. FUROSEMIDE. [Concomitant]
     Active Substance: FUROSEMIDE
     Indication: PRODUCT USED FOR UNKNOWN INDICATION
     Dosage: 40 MG, OTHER-2 TABS IN MORNING AND 2 TABS AT NIGHT
     Route: 048
  7. PRAVASTATIN [Concomitant]
     Active Substance: PRAVASTATIN\PRAVASTATIN SODIUM
     Indication: PRODUCT USED FOR UNKNOWN INDICATION
     Route: 048
  8. VESICARE [Suspect]
     Active Substance: SOLIFENACIN SUCCINATE
     Indication: BENIGN PROSTATIC HYPERPLASIA
  9. VESICARE [Suspect]
     Active Substance: SOLIFENACIN SUCCINATE
     Indication: URINARY RETENTION
  10. METFORMIN [Concomitant]
     Active Substance: METFORMIN HYDROCHLORIDE
     Indication: PRODUCT USED FOR UNKNOWN INDICATION
     Dosage: 1000 MG, BID WITH MEALS
     Route: 048
  11. QVAR [Concomitant]
     Active Substance: BECLOMETHASONE DIPROPIONATE
     Indication: PRODUCT USED FOR UNKNOWN INDICATION
     Dosage: 2 PUFFS BID
     Route: 055
  12. LANOXIN [Concomitant]
     Active Substance: DIGOXIN
     Indication: PRODUCT USED FOR UNKNOWN INDICATION
     Dosage: 0.125 MG, ONCE DAILY
     Route: 048
  13. VESICARE [Suspect]
     Active Substance: SOLIFENACIN SUCCINATE
     Indication: ESSENTIAL HYPERTENSION
  14. COREG [Concomitant]
     Active Substance: CARVEDILOL
     Indication: PRODUCT USED FOR UNKNOWN INDICATION
     Route: 048
  15. COZAAR [Concomitant]
     Active Substance: LOSARTAN POTASSIUM
     Indication: PRODUCT USED FOR UNKNOWN INDICATION
     Route: 048
  16. ASA [Concomitant]
     Active Substance: ASPIRIN
     Indication: PRODUCT USED FOR UNKNOWN INDICATION
     Route: 048

REACTIONS (10)
  - Atrial fibrillation [Not Recovered/Not Resolved]
  - Coronary artery disease [Not Recovered/Not Resolved]
  - Hypertension [Not Recovered/Not Resolved]
  - Product use issue [Unknown]
  - Diabetes mellitus inadequate control [Not Recovered/Not Resolved]
  - Dyslipidaemia [Not Recovered/Not Resolved]
  - Cardiac failure congestive [Not Recovered/Not Resolved]
  - Sarcoidosis [Not Recovered/Not Resolved]
  - Renal failure [Unknown]
  - Gastrooesophageal reflux disease [Not Recovered/Not Resolved]

NARRATIVE: CASE EVENT DATE: 20131204
